FAERS Safety Report 9541562 (Version 1)
Quarter: 2013Q3

REPORT INFORMATION
  Report Type: Spontaneous
  Country: US (occurrence: US)
  Receive Date: 20130923
  Receipt Date: 20130923
  Transmission Date: 20140515
  Serious: No
  Sender: FDA-Public Use
  Company Number: US-JNJFOC-20130909320

PATIENT
  Age: 50 Year
  Sex: Female

DRUGS (3)
  1. DURAGESIC [Suspect]
     Indication: PAIN
     Route: 062
     Dates: start: 201306
  2. DURAGESIC [Suspect]
     Indication: PAIN
     Route: 062
     Dates: end: 201207
  3. DURAGESIC [Suspect]
     Indication: PAIN
     Route: 062
     Dates: start: 201207, end: 201307

REACTIONS (2)
  - Adverse event [Unknown]
  - Drug dose omission [Unknown]
